FAERS Safety Report 8424021-7 (Version None)
Quarter: 2012Q2

REPORT INFORMATION
  Report Type: 
  Country: None (occurrence: None)
  Receive Date: 20120608
  Receipt Date: 20120604
  Transmission Date: 20120825
  Serious: Yes (Other)
  Sender: FDA-Public Use
  Company Number: PHHY2012IT048843

PATIENT
  Sex: Female

DRUGS (3)
  1. ADALAT [Concomitant]
     Dosage: 30 MG
     Route: 048
  2. ASPIRIN [Concomitant]
     Dosage: 160 MG, UNK
     Route: 048
  3. ATENOLOL CLORTALIDONA [Suspect]
     Indication: HYPERTENSION
     Dosage: 0.5 DF,(POSOLOGIC UNIT)
     Route: 048
     Dates: start: 20100114, end: 20110114

REACTIONS (1)
  - HYPOKALAEMIA [None]
